FAERS Safety Report 5185092-7 (Version None)
Quarter: 2006Q4

REPORT INFORMATION
  Report Type: 
  Country: None (occurrence: None)
  Receive Date: 20061212
  Receipt Date: 20061205
  Transmission Date: 20070319
  Serious: Yes (Hospitalization)
  Sender: FDA-Public Use
  Company Number: 163-21880-06101134

PATIENT
  Age: 75 Year
  Sex: Male

DRUGS (9)
  1. REVLIMID [Suspect]
     Indication: MYELODYSPLASTIC SYNDROME
     Dosage: 10 MG, 1 IN 1 D, ORAL
     Route: 048
     Dates: start: 20060502, end: 20060922
  2. ASA (ACERYLSALICYLIC ACID) [Concomitant]
  3. VASOTEC [Concomitant]
  4. PAXIL [Concomitant]
  5. LANOXIN [Concomitant]
  6. TRICOR [Concomitant]
  7. PROTONIX [Concomitant]
  8. CARDIZEM CD [Concomitant]
  9. TENORMIN [Concomitant]

REACTIONS (21)
  - ARTHRALGIA [None]
  - ATRIAL FIBRILLATION [None]
  - BLOOD CULTURE POSITIVE [None]
  - BUTTOCK PAIN [None]
  - CELLULITIS [None]
  - CEREBRAL INFARCTION [None]
  - CEREBRAL ISCHAEMIA [None]
  - CEREBROVASCULAR ACCIDENT [None]
  - CONFUSIONAL STATE [None]
  - CONVULSION [None]
  - DYSARTHRIA [None]
  - FALL [None]
  - HYPERTENSION [None]
  - HYPOTENSION [None]
  - INFLUENZA LIKE ILLNESS [None]
  - MYOSITIS [None]
  - OEDEMA [None]
  - PANCYTOPENIA [None]
  - PLEURAL EFFUSION [None]
  - SEPSIS [None]
  - SUBCUTANEOUS ABSCESS [None]
